FAERS Safety Report 7949446-5 (Version None)
Quarter: 2011Q4

REPORT INFORMATION
  Report Type: 
  Country: None (occurrence: None)
  Receive Date: 20111130
  Receipt Date: 20111024
  Transmission Date: 20120403
  Serious: Yes (Other)
  Sender: FDA-Public Use
  Company Number: JP-GLAXOSMITHKLINE-B0758890A

PATIENT
  Sex: Female

DRUGS (11)
  1. DOGMATYL [Concomitant]
     Route: 065
  2. LYRICA [Concomitant]
     Route: 048
  3. LAMICTAL [Suspect]
     Dosage: 50MG PER DAY
     Route: 048
     Dates: start: 20110927, end: 20111018
  4. MILNACIPRAN HYDROCHLORIDE [Concomitant]
     Route: 048
  5. TRANEXAMIC ACID [Concomitant]
     Indication: INFLAMMATION
     Dosage: 750MG PER DAY
     Route: 048
     Dates: start: 20111005, end: 20111009
  6. LAMICTAL [Suspect]
     Dosage: 25MG PER DAY
     Route: 048
     Dates: start: 20110914, end: 20110926
  7. CLONAZEPAM [Concomitant]
     Route: 048
  8. TEMAFLOXACIN HYDROCHLORIDE [Suspect]
     Indication: INFECTION
     Dosage: 450MG PER DAY
     Route: 048
     Dates: start: 20111005, end: 20111009
  9. SOLON [Concomitant]
     Indication: GASTRITIS PROPHYLAXIS
     Dosage: 150MG PER DAY
     Route: 048
     Dates: start: 20111005, end: 20111009
  10. LOXONIN [Suspect]
     Indication: PRODUCT USED FOR UNKNOWN INDICATION
     Route: 065
  11. LAMICTAL [Suspect]
     Indication: BIPOLAR DISORDER
     Dosage: 25MG ALTERNATE DAYS
     Route: 048
     Dates: start: 20110906, end: 20110913

REACTIONS (14)
  - ORAL MUCOSA EROSION [None]
  - C-REACTIVE PROTEIN INCREASED [None]
  - LYMPHADENOPATHY [None]
  - GENERALISED ERYTHEMA [None]
  - NECK PAIN [None]
  - EOSINOPHIL PERCENTAGE INCREASED [None]
  - ILL-DEFINED DISORDER [None]
  - STEVENS-JOHNSON SYNDROME [None]
  - PYREXIA [None]
  - WHITE BLOOD CELL COUNT INCREASED [None]
  - DRUG RASH WITH EOSINOPHILIA AND SYSTEMIC SYMPTOMS [None]
  - LYMPHADENITIS [None]
  - RASH [None]
  - MONOCYTE PERCENTAGE INCREASED [None]
